FAERS Safety Report 8321981-X (Version None)
Quarter: 2012Q2

REPORT INFORMATION
  Report Type: 
  Country: None (occurrence: None)
  Receive Date: 20120430
  Receipt Date: 20120426
  Transmission Date: 20120825
  Serious: Yes (Hospitalization)
  Sender: FDA-Public Use
  Company Number: IT-SANOFI-AVENTIS-2012SA025076

PATIENT
  Age: 60 Year
  Sex: Male

DRUGS (16)
  1. SODIUM FERRIC GLUCONATE COMPLEX [Suspect]
     Dosage: SLOW INFUSION
     Route: 042
     Dates: start: 20120411
  2. SODIUM BICARBONATE [Concomitant]
     Dates: start: 20090101, end: 20120403
  3. FOLIC ACID [Concomitant]
     Dates: start: 20120301, end: 20120403
  4. RAMIPRIL [Suspect]
     Route: 048
     Dates: start: 20080801, end: 20120403
  5. CARVEDILOL [Concomitant]
     Dates: start: 20110101, end: 20120403
  6. ASPIRIN [Concomitant]
     Dates: start: 20090101, end: 20120403
  7. ESKIM [Concomitant]
     Dates: start: 20101001, end: 20120403
  8. RENAGEL [Concomitant]
     Dates: start: 20080101, end: 20120403
  9. SODIUM FERRIC GLUCONATE COMPLEX [Suspect]
     Route: 042
     Dates: start: 20080801, end: 20120403
  10. DIDROGYL [Concomitant]
     Dates: start: 20100601, end: 20120403
  11. LASIX [Concomitant]
     Dates: start: 20080101, end: 20120403
  12. AMLODIPINE [Concomitant]
     Route: 048
     Dates: start: 20080101, end: 20120403
  13. ROCALTROL [Concomitant]
     Dates: start: 20080101, end: 20120403
  14. LANSOPRAZOLE [Concomitant]
     Dates: start: 20080101, end: 20120403
  15. PHOSLO [Concomitant]
     Dates: start: 20110701, end: 20120403
  16. VALSARTAN [Concomitant]
     Dates: start: 20090101, end: 20120403

REACTIONS (4)
  - DYSPHAGIA [None]
  - OROPHARYNGEAL PAIN [None]
  - PARAESTHESIA [None]
  - PARAESTHESIA ORAL [None]
